FAERS Safety Report 8279795-5 (Version None)
Quarter: 2012Q2

REPORT INFORMATION
  Report Type: 
  Country: None (occurrence: None)
  Receive Date: 20120412
  Receipt Date: 20110512
  Transmission Date: 20120825
  Serious: No
  Sender: FDA-Public Use
  Company Number: US-ASTRAZENECA-2011SE29873

PATIENT
  Age: 53 Year
  Sex: Female

DRUGS (3)
  1. CRESTOR [Suspect]
     Route: 048
  2. SEROQUEL [Suspect]
     Indication: SLEEP DISORDER
     Route: 048
  3. NEXIUM [Suspect]
     Route: 048

REACTIONS (3)
  - GASTROENTERITIS VIRAL [None]
  - MALAISE [None]
  - OFF LABEL USE [None]
